FAERS Safety Report 8592086-8 (Version None)
Quarter: 2012Q3

REPORT INFORMATION
  Report Type: 
  Country: None (occurrence: None)
  Receive Date: 20120814
  Receipt Date: 20120810
  Transmission Date: 20120928
  Serious: Yes (Hospitalization, Other)
  Sender: FDA-Public Use
  Company Number: CA-ABBOTT-11P-028-0734673-00

PATIENT
  Sex: Male
  Weight: 76.726 kg

DRUGS (2)
  1. ARAVA [Concomitant]
     Indication: ARTHRITIS
     Dosage: UNKNOWN
     Route: 048
  2. HUMIRA [Suspect]
     Indication: RHEUMATOID ARTHRITIS
     Route: 058
     Dates: start: 20061130

REACTIONS (2)
  - INTRACRANIAL ANEURYSM [None]
  - CEREBROVASCULAR ACCIDENT [None]
